FAERS Safety Report 8432824-8 (Version None)
Quarter: 2012Q2

REPORT INFORMATION
  Report Type: 
  Country: None (occurrence: None)
  Receive Date: 20120323
  Receipt Date: 20110708
  Transmission Date: 20120825
  Serious: Yes (Other)
  Sender: FDA-Public Use
  Company Number: 163-21880-11071224

PATIENT
  Age: 57 Year
  Sex: Male

DRUGS (2)
  1. REVLIMID [Suspect]
     Indication: MULTIPLE MYELOMA
     Dosage: 10 MG, DAILY FOR 21 DAYS, 7 DAYS REST, PO, 5 MG, DAILY FOR 21 DAYS, 7 DAYS REST, PO
     Route: 048
     Dates: start: 20110711
  2. REVLIMID [Suspect]
     Indication: MULTIPLE MYELOMA
     Dosage: 10 MG, DAILY FOR 21 DAYS, 7 DAYS REST, PO, 5 MG, DAILY FOR 21 DAYS, 7 DAYS REST, PO
     Route: 048
     Dates: start: 20101208, end: 20110606

REACTIONS (1)
  - RED BLOOD CELL COUNT DECREASED [None]
